FAERS Safety Report 15432321 (Version 1)
Quarter: 2018Q3

REPORT INFORMATION
  Report Type: Spontaneous
  Country: US (occurrence: US)
  Receive Date: 20180926
  Receipt Date: 20180926
  Transmission Date: 20181010
  Serious: No
  Sender: FDA-Public Use
  Company Number: US-ASTRAZENECA-2018SF09668

PATIENT
  Sex: Male

DRUGS (2)
  1. OXYGEN. [Concomitant]
     Active Substance: OXYGEN
  2. BEVESPI AEROSPHERE [Suspect]
     Active Substance: FORMOTEROL FUMARATE\GLYCOPYRROLATE
     Dosage: UNKNOWN
     Route: 055

REACTIONS (5)
  - Cardiac disorder [Unknown]
  - Osteoarthritis [Unknown]
  - Insomnia [Not Recovered/Not Resolved]
  - Chronic obstructive pulmonary disease [Unknown]
  - Product use issue [Not Recovered/Not Resolved]
